FAERS Safety Report 18203514 (Version 1)
Quarter: 2020Q3

REPORT INFORMATION
  Report Type: Report from Study
  Country: CN (occurrence: CN)
  Receive Date: 20200827
  Receipt Date: 20200827
  Transmission Date: 20201103
  Serious: Yes (Other)
  Sender: FDA-Public Use
  Company Number: CN-BAYER-2020-174018

PATIENT

DRUGS (1)
  1. RESOCHIN [Suspect]
     Active Substance: NIFEDIPINE
     Indication: COVID-19
     Dosage: 500 MG, BID
     Route: 048
     Dates: start: 2020, end: 2020

REACTIONS (1)
  - COVID-19 [None]

NARRATIVE: CASE EVENT DATE: 2020
